FAERS Safety Report 4726925-5 (Version None)
Quarter: 2005Q3

REPORT INFORMATION
  Report Type: 
  Country: None (occurrence: None)
  Receive Date: 20050726
  Receipt Date: 20050718
  Transmission Date: 20060218
  Serious: Yes (Hospitalization)
  Sender: FDA-Public Use
  Company Number: TPA2005A00793

PATIENT
  Age: 50 Year
  Sex: Male
  Weight: 117.9352 kg

DRUGS (7)
  1. ACTOS [Suspect]
     Indication: DIABETES MELLITUS NON-INSULIN-DEPENDENT
     Dosage: 30 MG, 1 IN 1 D, PER ORAL
     Route: 048
     Dates: start: 19990718
  2. GLUCOPHAGE [Concomitant]
  3. DIABETA [Concomitant]
  4. LASIX [Concomitant]
  5. MICARDIS [Concomitant]
  6. LIPITOR [Concomitant]
  7. TOPROL-XL [Concomitant]

REACTIONS (2)
  - CATARACT [None]
  - PNEUMONIA [None]
